FAERS Safety Report 5680695-5 (Version None)
Quarter: 2008Q1

REPORT INFORMATION
  Report Type: 
  Country: None (occurrence: None)
  Receive Date: 20080326
  Receipt Date: 20080103
  Transmission Date: 20080703
  Serious: No
  Sender: FDA-Public Use
  Company Number: US-BAUSCH-2008BL000020

PATIENT
  Age: 65 Year
  Sex: Female

DRUGS (7)
  1. ALAWAY [Suspect]
     Indication: EYE ALLERGY
     Route: 047
     Dates: start: 20071230, end: 20080102
  2. ALAWAY [Suspect]
     Indication: EYE PRURITUS
     Route: 047
     Dates: start: 20071230, end: 20080102
  3. ALAWAY [Suspect]
     Indication: EYE IRRITATION
     Route: 047
     Dates: start: 20071230, end: 20080102
  4. ALAWAY [Suspect]
     Indication: LACRIMATION INCREASED
     Route: 047
     Dates: start: 20071230, end: 20080102
  5. ALAWAY [Suspect]
     Indication: EYELIDS PRURITUS
     Route: 047
     Dates: start: 20071230, end: 20080102
  6. BAUSCH + LOMB ADVANCED EYE RELIEF EYE WASH [Concomitant]
     Indication: KERATOCONJUNCTIVITIS SICCA
     Route: 047
     Dates: start: 20070101
  7. DRY EYES LUBRICANT EYE OINTMENT [Concomitant]
     Indication: KERATOCONJUNCTIVITIS SICCA
     Route: 047
     Dates: start: 20070101

REACTIONS (5)
  - CONDITION AGGRAVATED [None]
  - DRUG HYPERSENSITIVITY [None]
  - EYE IRRITATION [None]
  - EYE PRURITUS [None]
  - LACRIMATION INCREASED [None]
